FAERS Safety Report 8821883 (Version 1)
Quarter: 2012Q4

REPORT INFORMATION
  Report Type: 
  Country: US (occurrence: US)
  Receive Date: 20121002
  Receipt Date: 20121002
  Transmission Date: 20130627
  Serious: Yes (Life-Threatening, Hospitalization, Other)
  Sender: FDA-Public Use
  Company Number: US-009507513-1210USA000601

PATIENT
  Age: 66 Year
  Sex: Female

DRUGS (2)
  1. JANUMET [Suspect]
     Dosage: 50/1000, bid
     Route: 048
  2. VICTOZA [Suspect]
     Dosage: 1.8 mg, qd
     Route: 058

REACTIONS (8)
  - Mucosal necrosis [Unknown]
  - Intestinal obstruction [Unknown]
  - Nausea [Unknown]
  - Haemorrhagic infarction [Unknown]
  - Vomiting [Unknown]
  - Septic shock [Unknown]
  - Ulcer [Unknown]
  - Abdominal pain upper [Unknown]
